FAERS Safety Report 5959567-4 (Version None)
Quarter: 2008Q4

REPORT INFORMATION
  Report Type: 
  Country: None (occurrence: None)
  Receive Date: 20081118
  Receipt Date: 20081103
  Transmission Date: 20090506
  Serious: Yes (Other)
  Sender: FDA-Public Use
  Company Number: 230078J08CAN

PATIENT
  Sex: Female

DRUGS (8)
  1. REBIF [Suspect]
     Indication: MULTIPLE SCLEROSIS
     Dosage: 3 IN 1 WEEKS
     Dates: start: 20040730
  2. IBURPROFEN [Concomitant]
  3. CITALOPRAM /00582601/ [Concomitant]
  4. AMITRIPTYLINE /00002201/ [Concomitant]
  5. ARTHROTEC [Concomitant]
  6. BACLOFEN [Concomitant]
  7. RISPERIDONE [Concomitant]
  8. CLONAZEPAM [Concomitant]

REACTIONS (8)
  - AMNESIA [None]
  - DYSARTHRIA [None]
  - HYPOAESTHESIA [None]
  - INJECTION SITE ERYTHEMA [None]
  - MIGRAINE [None]
  - MULTIPLE SCLEROSIS RELAPSE [None]
  - PANIC ATTACK [None]
  - URINARY TRACT INFECTION [None]
